FAERS Safety Report 17909120 (Version 1)
Quarter: 2020Q2

REPORT INFORMATION
  Report Type: Spontaneous
  Country: US (occurrence: US)
  Receive Date: 20200618
  Receipt Date: 20200618
  Transmission Date: 20200714
  Serious: Yes (Other)
  Sender: FDA-Public Use
  Company Number: US-GLENMARK PHARMACEUTICALS-2020GMK048143

PATIENT

DRUGS (3)
  1. FLUPHENAZINE [Interacting]
     Active Substance: FLUPHENAZINE
     Indication: PRODUCT USED FOR UNKNOWN INDICATION
     Dosage: UNK
     Route: 065
  2. FLUPHENAZINE [Interacting]
     Active Substance: FLUPHENAZINE
     Dosage: REDUCED DOSE
     Route: 065
  3. LITHIUM CARBONATE. [Suspect]
     Active Substance: LITHIUM CARBONATE
     Indication: PRODUCT USED FOR UNKNOWN INDICATION
     Dosage: UNK
     Route: 065
     Dates: start: 202006

REACTIONS (11)
  - Loss of consciousness [Unknown]
  - Tremor [Unknown]
  - Agitation [Unknown]
  - Eye movement disorder [Unknown]
  - Hypoglycaemia [Unknown]
  - Labelled drug-drug interaction medication error [Unknown]
  - Dehydration [Unknown]
  - Hyperhidrosis [Unknown]
  - Hallucination [Unknown]
  - Vomiting [Unknown]
  - Delusion [Unknown]

NARRATIVE: CASE EVENT DATE: 202006
